FAERS Safety Report 9277432 (Version 1)
Quarter: 2013Q2

REPORT INFORMATION
  Report Type: Spontaneous
  Country: US (occurrence: None)
  Receive Date: 20130503
  Receipt Date: 20130503
  Transmission Date: 20140414
  Serious: Yes (Hospitalization)
  Sender: FDA-Public Use
  Company Number: None

PATIENT
  Age: 65 Year
  Sex: Male
  Weight: 113.1 kg

DRUGS (1)
  1. CARBAMAZEPINE [Suspect]
     Route: 048
     Dates: start: 20120627, end: 20130103

REACTIONS (5)
  - Rash [None]
  - Respiratory distress [None]
  - Abdominal pain [None]
  - Electrocardiogram abnormal [None]
  - Drug reaction with eosinophilia and systemic symptoms [None]
